FAERS Safety Report 8446977-9 (Version None)
Quarter: 2012Q2

REPORT INFORMATION
  Report Type: 
  Country: None (occurrence: None)
  Receive Date: 20120619
  Receipt Date: 20120608
  Transmission Date: 20120825
  Serious: Yes (Other)
  Sender: FDA-Public Use
  Company Number: BR-BAYER-2012-057614

PATIENT
  Age: 66 Year
  Sex: Female
  Weight: 74 kg

DRUGS (16)
  1. DONAREN [Concomitant]
     Dosage: 50 MG, QD
     Route: 048
  2. CLONAZEPAM [Concomitant]
     Dosage: 2 MG, QD
     Route: 048
  3. AMITRIPTYLINE HCL [Concomitant]
     Dosage: 25 MG, QD
     Route: 048
  4. LOSARTAN POTASSIUM [Concomitant]
     Dosage: 100 MG, QD
     Route: 048
  5. OMEPRAZOLE [Concomitant]
     Dosage: 20 MG, BID
     Route: 048
  6. LEVOTHYROXINE SODIUM [Concomitant]
     Dosage: 75 ?G, QD
     Route: 048
  7. WARFARIN SODIUM [Concomitant]
     Dosage: 1 DF, QD
     Route: 048
  8. OSCAL D [Concomitant]
     Dosage: 1 DF, QD
     Route: 048
  9. PENTOXIFYLLINE [Concomitant]
     Dosage: 400 MG, BID
     Route: 048
  10. SIMVASTATIN [Concomitant]
     Dosage: 10 MG, QD
     Route: 048
  11. TRAMADOL HCL [Concomitant]
     Dosage: 50 MG, QD
     Route: 048
  12. AVELOX [Suspect]
     Indication: LUNG INFECTION
     Dosage: 1 DF, QD
     Route: 048
     Dates: start: 20120530, end: 20120604
  13. METFORMIN [Concomitant]
     Dosage: 850 MG, TID
     Route: 048
  14. LOPERAMIDE [Concomitant]
     Dosage: 2 MG, QD
     Route: 048
  15. TOPIRAMATE [Concomitant]
     Dosage: 30 MG, BID
     Route: 048
  16. FORMOTEROL FUMARATE [Concomitant]
     Dosage: 2 PUFF(S), QD

REACTIONS (2)
  - TOXICITY TO VARIOUS AGENTS [None]
  - RASH MACULAR [None]
